FAERS Safety Report 4581288-3 (Version None)
Quarter: 2005Q1

REPORT INFORMATION
  Report Type: 
  Country: None (occurrence: None)
  Receive Date: 20050214
  Receipt Date: 20040920
  Transmission Date: 20050727
  Serious: No
  Sender: FDA-Public Use
  Company Number: US-GLAXOSMITHKLINE-A0526435A

PATIENT
  Age: 60 Year
  Sex: Female

DRUGS (13)
  1. LAMICTAL [Suspect]
     Indication: BIPOLAR DISORDER
     Dosage: 200MG PER DAY
     Route: 048
     Dates: start: 20040101
  2. BEXTRA [Concomitant]
  3. FOLIC ACID [Concomitant]
  4. LEXAPRO [Concomitant]
  5. METHOTREXATE [Concomitant]
  6. SYNTHROID [Concomitant]
  7. WELLBUTRIN XL [Concomitant]
  8. EMBRIAL [Concomitant]
  9. GLUCOSAMINE [Concomitant]
  10. COQ10 [Concomitant]
  11. VITAMIN B COMPLEX CAP [Concomitant]
  12. ASPIRIN [Concomitant]
  13. CITRUCEL [Concomitant]

REACTIONS (4)
  - PRURITUS [None]
  - RASH MACULO-PAPULAR [None]
  - URTICARIA [None]
  - VAGINITIS BACTERIAL [None]
